FAERS Safety Report 9610994 (Version 1)
Quarter: 2013Q4

REPORT INFORMATION
  Report Type: Spontaneous
  Country: US (occurrence: US)
  Receive Date: 20131009
  Receipt Date: 20131009
  Transmission Date: 20140711
  Serious: Yes (Death)
  Sender: FDA-Public Use
  Company Number: US-GLAXOSMITHKLINE-A1044599A

PATIENT
  Age: 9 Year
  Sex: Male

DRUGS (1)
  1. ADVAIR [Suspect]
     Indication: ASTHMA
     Route: 055

REACTIONS (2)
  - Asthma [Fatal]
  - Panic reaction [Unknown]
